FAERS Safety Report 21847690 (Version 4)
Quarter: 2023Q1

REPORT INFORMATION
  Report Type: Spontaneous
  Country: US (occurrence: US)
  Receive Date: 20230111
  Receipt Date: 20230119
  Transmission Date: 20230417
  Serious: No
  Sender: FDA-Public Use
  Company Number: US-SA-SAC20230110000556

PATIENT
  Sex: Male

DRUGS (1)
  1. LANTUS SOLOSTAR [Suspect]
     Active Substance: INSULIN GLARGINE
     Dosage: 32 U
     Route: 065

REACTIONS (3)
  - Blood glucose increased [Unknown]
  - Incorrect dose administered [Unknown]
  - Device mechanical issue [Unknown]
